FAERS Safety Report 18585232 (Version 1)
Quarter: 2020Q4

REPORT INFORMATION
  Report Type: Spontaneous
  Country: US (occurrence: US)
  Receive Date: 20201207
  Receipt Date: 20201207
  Transmission Date: 20210114
  Serious: Yes (Hospitalization)
  Sender: FDA-Public Use
  Company Number: US-MYLANLABS-2020M1099365

PATIENT
  Age: 61 Year
  Sex: Male

DRUGS (3)
  1. AMIODARONE [Suspect]
     Active Substance: AMIODARONE
     Indication: VENTRICULAR TACHYCARDIA
     Dosage: UNK
     Route: 065
  2. AMIODARONE [Suspect]
     Active Substance: AMIODARONE
     Dosage: MAINTENANCE DOSE WAS INCREASED
     Route: 065
  3. QUINIDINE [Suspect]
     Active Substance: QUINIDINE
     Indication: VENTRICULAR TACHYCARDIA
     Dosage: UNK
     Route: 065

REACTIONS (5)
  - Facial bones fracture [Unknown]
  - Electrocardiogram QRS complex prolonged [Recovering/Resolving]
  - Syncope [Unknown]
  - Electrocardiogram abnormal [Recovering/Resolving]
  - Tooth injury [Unknown]
